FAERS Safety Report 8368158-X (Version None)
Quarter: 2012Q2

REPORT INFORMATION
  Report Type: 
  Country: None (occurrence: None)
  Receive Date: 20120517
  Receipt Date: 20120510
  Transmission Date: 20120825
  Serious: Yes (Hospitalization)
  Sender: FDA-Public Use
  Company Number: NL-FRI-1000030522

PATIENT
  Sex: Male
  Weight: 150 kg

DRUGS (1)
  1. MEMANTINE HCL [Suspect]
     Indication: DEMENTIA
     Dosage: 20 MG
     Route: 048
     Dates: start: 20120301, end: 20120412

REACTIONS (2)
  - ABASIA [None]
  - HYPOAESTHESIA [None]
